FAERS Safety Report 12185001 (Version 1)
Quarter: 2016Q1

REPORT INFORMATION
  Report Type: Spontaneous
  Country: US (occurrence: US)
  Receive Date: 20160316
  Receipt Date: 20160316
  Transmission Date: 20160526
  Serious: No
  Sender: FDA-Public Use
  Company Number: US-BAYER-2016-049571

PATIENT
  Age: 58 Year
  Sex: Female

DRUGS (1)
  1. GADAVIST [Suspect]
     Active Substance: GADOBUTROL
     Indication: NUCLEAR MAGNETIC RESONANCE IMAGING LIVER
     Dosage: UNK UNK, ONCE
     Route: 042
     Dates: start: 20160301, end: 20160301

REACTIONS (2)
  - Product use issue [None]
  - Vomiting [None]

NARRATIVE: CASE EVENT DATE: 20160301
